FAERS Safety Report 9485322 (Version 2)
Quarter: 2013Q3

REPORT INFORMATION
  Report Type: Report from Study
  Country: ES (occurrence: ES)
  Receive Date: 20130828
  Receipt Date: 20130916
  Transmission Date: 20140515
  Serious: Yes (Hospitalization)
  Sender: FDA-Public Use
  Company Number: ES-009507513-1308ESP008015

PATIENT
  Age: 53 Year
  Sex: Male
  Weight: 65 kg

DRUGS (6)
  1. VICTRELIS [Suspect]
     Indication: HEPATITIS C
     Dosage: 800 MG/8H
     Route: 048
     Dates: start: 20120528, end: 20130131
  2. VICTRELIS [Suspect]
     Indication: HEPATIC CIRRHOSIS
  3. PEGASYS [Suspect]
     Indication: HEPATITIS C
     Dosage: UNK
     Route: 058
     Dates: start: 20120430, end: 20130131
  4. REBETOL [Suspect]
     Indication: HEPATITIS C
     Dosage: 1000 MG, QD
     Route: 048
     Dates: start: 20120430, end: 20130131
  5. REBETOL [Suspect]
     Dosage: 1000 MG QD
     Route: 048
     Dates: start: 20120430, end: 2012
  6. REBETOL [Suspect]
     Dosage: 600 MG, QD
     Route: 048

REACTIONS (15)
  - Abscess oral [Recovering/Resolving]
  - Anaemia [Recovered/Resolved]
  - Rash erythematous [Recovered/Resolved]
  - Skin lesion [Recovered/Resolved]
  - Pruritus [Recovered/Resolved]
  - Oropharyngeal pain [Recovering/Resolving]
  - Neck pain [Recovering/Resolving]
  - Swelling [Recovering/Resolving]
  - Pyrexia [Recovering/Resolving]
  - Dysphonia [Recovering/Resolving]
  - Pharyngeal disorder [Recovering/Resolving]
  - Localised oedema [Recovering/Resolving]
  - Trismus [Recovering/Resolving]
  - White blood cell count [Unknown]
  - Lymphadenopathy [Recovering/Resolving]
